FAERS Safety Report 23389065 (Version 8)
Quarter: 2025Q3

REPORT INFORMATION
  Report Type: Spontaneous
  Country: US (occurrence: US)
  Receive Date: 20240110
  Receipt Date: 20250827
  Transmission Date: 20251021
  Serious: No
  Sender: PFIZER
  Company Number: US-PFIZER INC-PV202300003433

PATIENT
  Age: 73 Year
  Sex: Male

DRUGS (7)
  1. TIKOSYN [Suspect]
     Active Substance: DOFETILIDE
     Indication: Arrhythmia
  2. TIKOSYN [Suspect]
     Active Substance: DOFETILIDE
     Indication: Atrial fibrillation
  3. TIKOSYN [Suspect]
     Active Substance: DOFETILIDE
  4. TIKOSYN [Suspect]
     Active Substance: DOFETILIDE
     Dosage: TWICE A DAY ABOUT 6 IN THE MORNING AND ABOUT SIX IN THE EVENING (125)
     Route: 048
     Dates: start: 2021
  5. TIKOSYN [Suspect]
     Active Substance: DOFETILIDE
     Route: 048
     Dates: start: 2021
  6. FUROSEMIDE [Concomitant]
     Active Substance: FUROSEMIDE
     Indication: Polyuria
  7. ATENOLOL [Concomitant]
     Active Substance: ATENOLOL
     Indication: Cardiac disorder
     Dosage: UNK, 2X/DAY

REACTIONS (4)
  - Colour blindness [Unknown]
  - Heart rate decreased [Unknown]
  - Product prescribing error [Unknown]
  - Product dispensing error [Unknown]
